FAERS Safety Report 9848907 (Version 1)
Quarter: 2014Q1

REPORT INFORMATION
  Report Type: Spontaneous
  Country: US (occurrence: None)
  Receive Date: 20140124
  Receipt Date: 20140124
  Transmission Date: 20141002
  Serious: Yes (Other)
  Sender: FDA-Public Use
  Company Number: None

PATIENT
  Age: 44 Year
  Sex: 0
  Weight: 88.2 kg

DRUGS (3)
  1. DULOXETINE [Suspect]
     Indication: BIPOLAR II DISORDER
     Route: 048
     Dates: start: 20140117, end: 20140122
  2. DULOXETINE [Suspect]
     Indication: POST-TRAUMATIC STRESS DISORDER
     Route: 048
     Dates: start: 20140117, end: 20140122
  3. DULOXETINE [Suspect]
     Route: 048
     Dates: start: 20140117, end: 20140122

REACTIONS (9)
  - Photophobia [None]
  - Nausea [None]
  - Headache [None]
  - Dyspnoea [None]
  - Thinking abnormal [None]
  - Palpitations [None]
  - Tremor [None]
  - Asthenia [None]
  - Product substitution issue [None]
